FAERS Safety Report 4729991-6 (Version None)
Quarter: 2005Q3

REPORT INFORMATION
  Report Type: 
  Country: None (occurrence: None)
  Receive Date: 20050801
  Receipt Date: 20050727
  Transmission Date: 20060218
  Serious: Yes (Hospitalization)
  Sender: FDA-Public Use
  Company Number: DE-BOEHRINGER INGELHEIM PHARMACEUTICALS, INC.-2005-DE-02918DE

PATIENT
  Sex: Male

DRUGS (3)
  1. MICARDIS [Suspect]
  2. FENOFIBRAT [Concomitant]
  3. ASPIRIN [Concomitant]

REACTIONS (1)
  - HAEMOLYTIC ANAEMIA [None]
